FAERS Safety Report 12390013 (Version 1)
Quarter: 2016Q2

REPORT INFORMATION
  Report Type: Spontaneous
  Country: US (occurrence: US)
  Receive Date: 20160520
  Receipt Date: 20160520
  Transmission Date: 20160815
  Serious: No
  Sender: FDA-Public Use
  Company Number: US-BAYER-2016-093371

PATIENT
  Age: 19 Year

DRUGS (1)
  1. GADAVIST [Suspect]
     Active Substance: GADOBUTROL
     Indication: NUCLEAR MAGNETIC RESONANCE IMAGING
     Dosage: 9 ML, ONCE
     Dates: start: 20160507, end: 20160507

REACTIONS (2)
  - Swelling face [None]
  - Off label use [None]

NARRATIVE: CASE EVENT DATE: 20160507
